FAERS Safety Report 5533370-1 (Version None)
Quarter: 2007Q4

REPORT INFORMATION
  Report Type: 
  Country: None (occurrence: None)
  Receive Date: 20071204
  Receipt Date: 20071121
  Transmission Date: 20080405
  Serious: Yes (Hospitalization)
  Sender: FDA-Public Use
  Company Number: FR-ELI_LILLY_AND_COMPANY-FR200711004989

PATIENT
  Age: 93 Year
  Sex: Male

DRUGS (5)
  1. PROZAC [Suspect]
     Dosage: 20 MG, DAILY (1/D)
     Route: 048
     Dates: start: 19970716, end: 19970812
  2. CIFLOX [Concomitant]
     Dosage: 1.6 G, OTHER
     Route: 042
     Dates: start: 19970722, end: 19970726
  3. CIFLOX [Concomitant]
     Dosage: 1 D/F, 2/D
     Route: 048
     Dates: start: 19970726, end: 19970811
  4. AUGMENTIN /UNK/ [Concomitant]
     Dosage: 12 G, OTHER
     Route: 042
     Dates: start: 19970722, end: 19970726
  5. AUGMENTIN /UNK/ [Concomitant]
     Dosage: 1 D/F, 3/D
     Route: 048
     Dates: start: 19970726, end: 19970811

REACTIONS (4)
  - AGRANULOCYTOSIS [None]
  - ANAEMIA [None]
  - DIABETES MELLITUS INADEQUATE CONTROL [None]
  - ESCHAR [None]
